FAERS Safety Report 7767098-4 (Version None)
Quarter: 2011Q3

REPORT INFORMATION
  Report Type: 
  Country: None (occurrence: None)
  Receive Date: 20110922
  Receipt Date: 20110502
  Transmission Date: 20111222
  Serious: No
  Sender: FDA-Public Use
  Company Number: US-ASTRAZENECA-2011SE15732

PATIENT
  Age: 41 Year
  Sex: Female

DRUGS (3)
  1. SEROQUEL XR [Suspect]
     Route: 048
  2. GEODON [Concomitant]
  3. NEXIUM [Suspect]
     Route: 048

REACTIONS (4)
  - DIABETES MELLITUS [None]
  - WEIGHT INCREASED [None]
  - BIPOLAR DISORDER [None]
  - BLOOD GLUCOSE INCREASED [None]
